FAERS Safety Report 24934609 (Version 1)
Quarter: 2025Q1

REPORT INFORMATION
  Report Type: Report from Study
  Country: US (occurrence: US)
  Receive Date: 20250206
  Receipt Date: 20250206
  Transmission Date: 20250408
  Serious: No
  Sender: EXELIXIS
  Company Number: US-EXELIXIS-EXL-2024-001209

PATIENT
  Sex: Female

DRUGS (28)
  1. CABOMETYX [Suspect]
     Active Substance: CABOZANTINIB S-MALATE
     Indication: Renal cancer
     Dosage: 40 MG, QD
     Dates: end: 20241002
  2. BENADRYL [Concomitant]
     Active Substance: DIPHENHYDRAMINE HYDROCHLORIDE
  3. ASPIRIN [Concomitant]
     Active Substance: ASPIRIN
  4. CALCIUM\VITAMIN D [Concomitant]
     Active Substance: CALCIUM\VITAMIN D
  5. VITAMINS [Concomitant]
     Active Substance: VITAMINS
  6. CITALOPRAM [Concomitant]
     Active Substance: CITALOPRAM
  7. CLOBETASOL [Concomitant]
     Active Substance: CLOBETASOL
  8. CRANBERRY [Concomitant]
     Active Substance: CRANBERRY
  9. CYCLOBENZAPRINE [Concomitant]
     Active Substance: CYCLOBENZAPRINE
  10. DIPHENHYDRAMINE [Concomitant]
     Active Substance: DIPHENHYDRAMINE
  11. FISH OIL [Concomitant]
     Active Substance: FISH OIL
  12. FLONASE ALLERGY RELIEF [Concomitant]
     Active Substance: FLUTICASONE PROPIONATE
  13. Hair skin nails [Concomitant]
  14. LACTASE [Concomitant]
     Active Substance: LACTASE
  15. MAGNESIUM [Concomitant]
     Active Substance: MAGNESIUM
  16. MECLIZINE [Concomitant]
     Active Substance: MECLIZINE HYDROCHLORIDE
  17. MELATONIN [Concomitant]
     Active Substance: MELATONIN
  18. MUCINEX [Concomitant]
     Active Substance: GUAIFENESIN
  19. OMEPRAZOLE [Concomitant]
     Active Substance: OMEPRAZOLE
  20. CHONDROITIN SULFATE A\GLUCOSAMINE [Concomitant]
     Active Substance: CHONDROITIN SULFATE A\GLUCOSAMINE
  21. PRAVASTATIN [Concomitant]
     Active Substance: PRAVASTATIN
  22. PROBIOTIC CHEWABLE [Concomitant]
  23. PROCTO-MED HC [Concomitant]
     Active Substance: HYDROCORTISONE
  24. HOMEOPATHICS [Concomitant]
     Active Substance: HOMEOPATHICS
  25. TACROLIMUS [Concomitant]
     Active Substance: TACROLIMUS
  26. TYLENOL [Concomitant]
     Active Substance: ACETAMINOPHEN
  27. ZORYVE [Concomitant]
     Active Substance: ROFLUMILAST
  28. CETIRIZINE HYDROCHLORIDE [Concomitant]
     Active Substance: CETIRIZINE HYDROCHLORIDE

REACTIONS (7)
  - Muscle spasms [Unknown]
  - Dizziness [Unknown]
  - Fatigue [Unknown]
  - Constipation [Unknown]
  - Gastrooesophageal reflux disease [Unknown]
  - Pain [Unknown]
  - Product dose omission issue [Unknown]
